FAERS Safety Report 7525779-1 (Version None)
Quarter: 2011Q2

REPORT INFORMATION
  Report Type: 
  Country: None (occurrence: None)
  Receive Date: 20110606
  Receipt Date: 20110601
  Transmission Date: 20111010
  Serious: Yes (Death, Hospitalization, Other)
  Sender: FDA-Public Use
  Company Number: PHHY2011BR15900

PATIENT
  Sex: Male

DRUGS (6)
  1. STALEVO 100 [Suspect]
     Indication: PARKINSON'S DISEASE
     Dosage: 50 MG
     Route: 048
     Dates: start: 20090501
  2. STALEVO 100 [Suspect]
     Dosage: 150 MG
     Route: 048
  3. PROLOPA [Concomitant]
     Indication: PARKINSON'S DISEASE
     Dosage: UNK
     Dates: start: 19960101
  4. STALEVO 100 [Suspect]
     Dosage: 100 MG
     Route: 048
  5. STALEVO 100 [Suspect]
     Dosage: 150 MG IN MORNING, 100 MG EVERY 3 HOURS
  6. AKINETON [Concomitant]
     Indication: PARKINSON'S DISEASE
     Dosage: UNK
     Dates: start: 19960101

REACTIONS (4)
  - DYSPNOEA [None]
  - CARDIO-RESPIRATORY ARREST [None]
  - PYREXIA [None]
  - EMPHYSEMA [None]
